FAERS Safety Report 11693389 (Version 1)
Quarter: 2015Q4

REPORT INFORMATION
  Report Type: Spontaneous
  Country: None (occurrence: None)
  Receive Date: 20151102
  Receipt Date: 20151102
  Transmission Date: 20160304
  Serious: Yes (Other)
  Sender: FDA-Public Use
  Company Number: None

PATIENT
  Age: 23 Year
  Sex: Female
  Weight: 61.69 kg

DRUGS (6)
  1. TYLENOL. [Concomitant]
  2. ADVIL [Concomitant]
     Active Substance: IBUPROFEN
  3. SUBOXONE [Concomitant]
     Active Substance: BUPRENORPHINE HYDROCHLORIDE\NALOXONE HYDROCHLORIDE
  4. LEXAPRO [Concomitant]
     Active Substance: ESCITALOPRAM OXALATE
  5. IBUPROFREN [Concomitant]
  6. SUBOXONE [Suspect]
     Active Substance: BUPRENORPHINE HYDROCHLORIDE\NALOXONE HYDROCHLORIDE
     Indication: DRUG DEPENDENCE
     Dosage: 8MG, TWICE DAILY, TAKEN UNDER THE TONGUE
     Dates: start: 20150928, end: 20151030

REACTIONS (5)
  - Swollen tongue [None]
  - Stomatitis [None]
  - Dry mouth [None]
  - Salivary gland enlargement [None]
  - Gingival swelling [None]

NARRATIVE: CASE EVENT DATE: 20151026
